FAERS Safety Report 14512517 (Version 1)
Quarter: 2018Q1

REPORT INFORMATION
  Report Type: Spontaneous
  Country: US (occurrence: US)
  Receive Date: 20180209
  Receipt Date: 20180209
  Transmission Date: 20180509
  Serious: No
  Sender: FDA-Public Use
  Company Number: US-ALLERGAN-1714732US

PATIENT
  Age: 55 Year
  Sex: Female

DRUGS (6)
  1. RESTASIS [Suspect]
     Active Substance: CYCLOSPORINE
     Indication: DRY EYE
     Dosage: 2 GTT, BID
     Route: 047
     Dates: end: 20170304
  2. RESTASIS [Suspect]
     Active Substance: CYCLOSPORINE
     Dosage: 2 GTT, BID
     Route: 047
     Dates: start: 20170314
  3. VALACYCLOVIR [Concomitant]
     Active Substance: VALACYCLOVIR HYDROCHLORIDE
     Dosage: 500 MG DAIL OR 1000 MG FOR OUTBREAK
  4. BAUSCH + LOMB MOISTURE EYES [Concomitant]
     Route: 047
  5. CLOBETASOL [Concomitant]
     Active Substance: CLOBETASOL
     Indication: GRANULOMA ANNULARE
     Dosage: UNK, UNKNOWN
     Route: 061
  6. VISINE A.C. [Concomitant]
     Active Substance: TETRAHYDROZOLINE HYDROCHLORIDE\ZINC SULFATE
     Route: 047

REACTIONS (7)
  - Eye discharge [Not Recovered/Not Resolved]
  - Drug dose omission [Unknown]
  - Ocular hyperaemia [Not Recovered/Not Resolved]
  - Vertigo [Not Recovered/Not Resolved]
  - Dry eye [Not Recovered/Not Resolved]
  - Eye pruritus [Not Recovered/Not Resolved]
  - Eye irritation [Not Recovered/Not Resolved]

NARRATIVE: CASE EVENT DATE: 201701
